FAERS Safety Report 24266439 (Version 1)
Quarter: 2024Q3

REPORT INFORMATION
  Report Type: Spontaneous
  Country: US (occurrence: None)
  Receive Date: 20240830
  Receipt Date: 20240830
  Transmission Date: 20241017
  Serious: No
  Sender: AXSOME THERAPEUTICS
  Company Number: US-ARIS GLOBAL-AXS202406-000779

PATIENT

DRUGS (2)
  1. AUVELITY [Suspect]
     Active Substance: BUPROPION HYDROCHLORIDE\DEXTROMETHORPHAN HYDROBROMIDE
     Indication: Product used for unknown indication
     Route: 065
     Dates: start: 20240531, end: 20240602
  2. AUVELITY [Suspect]
     Active Substance: BUPROPION HYDROCHLORIDE\DEXTROMETHORPHAN HYDROBROMIDE
     Route: 065
     Dates: start: 20240603

REACTIONS (5)
  - Feeling abnormal [Unknown]
  - Gait disturbance [Unknown]
  - Bradykinesia [Unknown]
  - Confusional state [Unknown]
  - Euphoric mood [Unknown]

NARRATIVE: CASE EVENT DATE: 20240604
